FAERS Safety Report 6566364-8 (Version None)
Quarter: 2010Q1

REPORT INFORMATION
  Report Type: 
  Country: None (occurrence: None)
  Receive Date: 20100202
  Receipt Date: 20100122
  Transmission Date: 20100710
  Serious: Yes (Death, Hospitalization)
  Sender: FDA-Public Use
  Company Number: FR-ELI_LILLY_AND_COMPANY-FR200912004759

PATIENT
  Age: 81 Year
  Sex: Female
  Weight: 60 kg

DRUGS (1)
  1. FORTEO [Suspect]
     Indication: OSTEOPOROSIS
     Dosage: 20 UG, DAILY (1/D)
     Route: 058
     Dates: start: 20090115

REACTIONS (5)
  - DEATH [None]
  - HEPATIC FUNCTION ABNORMAL [None]
  - OEDEMA PERIPHERAL [None]
  - PNEUMONIA ASPIRATION [None]
  - SCIATICA [None]
